FAERS Safety Report 7439145-0 (Version None)
Quarter: 2011Q2

REPORT INFORMATION
  Report Type: 
  Country: None (occurrence: None)
  Receive Date: 20110427
  Receipt Date: 20101215
  Transmission Date: 20111010
  Serious: Yes (Hospitalization)
  Sender: FDA-Public Use
  Company Number: US-BAYER-201010381NA

PATIENT
  Age: 23 Year
  Sex: Female
  Weight: 87.982 kg

DRUGS (4)
  1. IMITREX [Concomitant]
  2. YASMIN [Suspect]
     Indication: PREMENSTRUAL SYNDROME
  3. YASMIN [Suspect]
     Indication: CONTRACEPTION
  4. LORATADINE [Concomitant]
     Dosage: UNK

REACTIONS (8)
  - PULMONARY EMBOLISM [None]
  - DYSPNOEA [None]
  - HYPERVENTILATION [None]
  - CHEST PAIN [None]
  - MUSCULOSKELETAL CHEST PAIN [None]
  - HYPOAESTHESIA [None]
  - ANXIETY [None]
  - PARAESTHESIA [None]
